FAERS Safety Report 23511735 (Version 3)
Quarter: 2024Q1

REPORT INFORMATION
  Report Type: Spontaneous
  Country: ES (occurrence: None)
  Receive Date: 20240212
  Receipt Date: 20240308
  Transmission Date: 20240409
  Serious: Yes (Hospitalization, Disabling, Other)
  Sender: FDA-Public Use
  Company Number: 2024A032308

PATIENT
  Age: 83 Year
  Sex: Female
  Weight: 52 kg

DRUGS (9)
  1. TAGRISSO [Suspect]
     Active Substance: OSIMERTINIB
     Indication: Lung carcinoma cell type unspecified stage IV
     Route: 048
     Dates: start: 202209, end: 20240221
  2. PRISTIQ EXTENDED-RELEASE [Concomitant]
     Active Substance: DESVENLAFAXINE SUCCINATE
     Dosage: S0MG /DAY
  3. LORAZEPAM [Concomitant]
     Active Substance: LORAZEPAM
     Dosage: LMG /DAY
  4. CALCIFEDIOL [Concomitant]
     Active Substance: CALCIFEDIOL
     Dosage: 0,266MG /MONTLY
  5. DEPRAX [Concomitant]
     Dosage: I00MG/DAY
  6. ESOMEPRAZOLE [Concomitant]
     Active Substance: ESOMEPRAZOLE
     Dosage: 20 MG /DAY
  7. ATORVASTATIN [Concomitant]
     Active Substance: ATORVASTATIN
     Dosage: 20 MG /DAY
  8. HYDROCHLOROTHIAZIDE\OLMESARTAN MEDOXOMIL [Concomitant]
     Active Substance: HYDROCHLOROTHIAZIDE\OLMESARTAN MEDOXOMIL
     Dosage: 20/12,5 MG /DAY
  9. ATROVENT [Concomitant]
     Active Substance: IPRATROPIUM BROMIDE
     Dosage: 20 MICROGRAMS/12 HOURS

REACTIONS (8)
  - Toxic leukoencephalopathy [Not Recovered/Not Resolved]
  - Malignant neoplasm progression [Unknown]
  - Gastrointestinal toxicity [Unknown]
  - Dizziness [Unknown]
  - Gait disturbance [Unknown]
  - Ocular discomfort [Unknown]
  - Bedridden [Unknown]
  - Computerised tomogram abnormal [Unknown]

NARRATIVE: CASE EVENT DATE: 20231201
